FAERS Safety Report 18789618 (Version 5)
Quarter: 2021Q1

REPORT INFORMATION
  Report Type: Report from Study
  Country: US (occurrence: US)
  Receive Date: 20210126
  Receipt Date: 20210305
  Transmission Date: 20210419
  Serious: Yes (Other)
  Sender: FDA-Public Use
  Company Number: US-BEH-2021127522

PATIENT
  Age: 33 Year
  Sex: Female

DRUGS (3)
  1. HIZENTRA [Suspect]
     Active Substance: HUMAN IMMUNOGLOBULIN G
     Dosage: 19 GRAM, QOW
     Route: 058
     Dates: start: 20200302
  2. METFORMIN [Concomitant]
     Active Substance: METFORMIN HYDROCHLORIDE
     Indication: BLOOD INSULIN DECREASED
     Route: 065
  3. HIZENTRA [Suspect]
     Active Substance: HUMAN IMMUNOGLOBULIN G
     Indication: PRIMARY IMMUNODEFICIENCY SYNDROME
     Dosage: 19 GRAM, BIW
     Route: 058
     Dates: start: 20200302

REACTIONS (13)
  - Injection site pain [Unknown]
  - Injection site erythema [Unknown]
  - Administration site wound [Recovered/Resolved]
  - Injection site induration [Recovering/Resolving]
  - Product dose omission issue [Unknown]
  - Product distribution issue [Unknown]
  - Injection site mass [Recovering/Resolving]
  - Injection site pain [Recovered/Resolved]
  - Infusion site pain [Recovered/Resolved]
  - Injection site induration [Unknown]
  - Injection site vesicles [Recovered/Resolved]
  - Injection site induration [Not Recovered/Not Resolved]
  - No adverse event [Unknown]

NARRATIVE: CASE EVENT DATE: 20200401
